FAERS Safety Report 25566383 (Version 1)
Quarter: 2025Q3

REPORT INFORMATION
  Report Type: Spontaneous
  Country: US (occurrence: US)
  Receive Date: 20250716
  Receipt Date: 20250716
  Transmission Date: 20251021
  Serious: No
  Sender: NOVO NORDISK
  Company Number: US-NOVOPROD-1307260

PATIENT
  Sex: Female

DRUGS (2)
  1. OZEMPIC [Suspect]
     Active Substance: SEMAGLUTIDE
     Route: 058
     Dates: start: 20240801
  2. OZEMPIC [Suspect]
     Active Substance: SEMAGLUTIDE
     Indication: Type 2 diabetes mellitus
     Route: 058
     Dates: start: 20240905, end: 20241107

REACTIONS (8)
  - Hypotension [Unknown]
  - Feeling abnormal [Unknown]
  - Skin wrinkling [Unknown]
  - Weight decreased [Unknown]
  - Flatulence [Unknown]
  - Constipation [Unknown]
  - Product communication issue [Unknown]
  - Off label use [Unknown]
